FAERS Safety Report 25058917 (Version 1)
Quarter: 2025Q1

REPORT INFORMATION
  Report Type: Spontaneous
  Country: NL (occurrence: NL)
  Receive Date: 20250310
  Receipt Date: 20250310
  Transmission Date: 20250408
  Serious: Yes (Other)
  Sender: AUROBINDO
  Company Number: NL-LRB-01037813

PATIENT
  Age: 81 Year
  Sex: Female
  Weight: 69 kg

DRUGS (2)
  1. FLUCLOXACILLIN [Suspect]
     Active Substance: FLUCLOXACILLIN
     Indication: Antibiotic prophylaxis
     Dosage: 500 MILLIGRAM, FOUR TIMES/DAY (4 X PER DAG 1 STUK)
     Route: 048
     Dates: start: 20250205
  2. ACETAMINOPHEN [Suspect]
     Active Substance: ACETAMINOPHEN
     Indication: Pain
     Dosage: 1 DOSAGE FORM, EVERY FOUR HOUR (5 X PER 24 UUR 2 STUKS)
     Route: 065
     Dates: start: 20250206, end: 20250209

REACTIONS (3)
  - Melaena [Not Recovered/Not Resolved]
  - Nausea [Not Recovered/Not Resolved]
  - Abdominal pain upper [Not Recovered/Not Resolved]
